FAERS Safety Report 14765102 (Version 1)
Quarter: 2018Q2

REPORT INFORMATION
  Report Type: Spontaneous
  Country: US (occurrence: US)
  Receive Date: 20180416
  Receipt Date: 20180416
  Transmission Date: 20180711
  Serious: Yes (Other)
  Sender: FDA-Public Use
  Company Number: US-PFIZER INC-2018149129

PATIENT
  Age: 50 Year
  Sex: Male

DRUGS (1)
  1. DEPO-TESTOSTERONE [Suspect]
     Active Substance: TESTOSTERONE CYPIONATE
     Dosage: 200 MG, UNK

REACTIONS (6)
  - Mental impairment [Unknown]
  - Fatigue [Unknown]
  - Memory impairment [Unknown]
  - Asthenia [Unknown]
  - Disturbance in attention [Unknown]
  - Night sweats [Unknown]
